FAERS Safety Report 21268681 (Version 1)
Quarter: 2022Q3

REPORT INFORMATION
  Report Type: Spontaneous
  Country: US (occurrence: US)
  Receive Date: 20220830
  Receipt Date: 20220830
  Transmission Date: 20221027
  Serious: Yes (Other)
  Sender: FDA-Public Use
  Company Number: US-BRISTOL-MYERS SQUIBB COMPANY-2022-095737

PATIENT
  Age: 76 Year
  Sex: Male

DRUGS (1)
  1. REVLIMID [Suspect]
     Active Substance: LENALIDOMIDE
     Indication: Product used for unknown indication
     Dosage: TAKE 1 CAPSULE (15MG) BY MOUTH WHOLE WITH WATER, AT THE SAME TIME EACH DAY ON DAYS 1-14 OF EACH 21 D
     Route: 048
     Dates: start: 20200921

REACTIONS (1)
  - Malaria [Recovered/Resolved]
